FAERS Safety Report 5489863-9 (Version None)
Quarter: 2007Q4

REPORT INFORMATION
  Report Type: 
  Country: None (occurrence: None)
  Receive Date: 20071018
  Receipt Date: 20071008
  Transmission Date: 20080405
  Serious: Yes (Hospitalization, Other)
  Sender: FDA-Public Use
  Company Number: CH-PFIZER INC-2007070568

PATIENT
  Sex: Female
  Weight: 55 kg

DRUGS (8)
  1. SORTIS [Suspect]
     Indication: DYSLIPIDAEMIA
     Route: 048
  2. OLFEN [Concomitant]
  3. ALL OTHER THERAPEUTIC PRODUCTS [Concomitant]
  4. DANCOR [Concomitant]
  5. ASPIRIN [Concomitant]
  6. PANTOPRAZOLE SODIUM [Concomitant]
     Dosage: TEXT:20MG TO 60MG DAILY
  7. MINITRAN [Concomitant]
  8. STRUCTUM [Concomitant]

REACTIONS (14)
  - ANGINA PECTORIS [None]
  - CARDIAC VENTRICULAR DISORDER [None]
  - DECREASED APPETITE [None]
  - DYSPNOEA [None]
  - GASTROENTERITIS [None]
  - HEPATITIS [None]
  - HYPERHIDROSIS [None]
  - MUSCULAR WEAKNESS [None]
  - NIGHT SWEATS [None]
  - PARAESTHESIA [None]
  - PERIPHERAL COLDNESS [None]
  - RHABDOMYOLYSIS [None]
  - VENTRICULAR HYPOKINESIA [None]
  - WEIGHT FLUCTUATION [None]
